FAERS Safety Report 7457324-3 (Version None)
Quarter: 2011Q2

REPORT INFORMATION
  Report Type: 
  Country: None (occurrence: None)
  Receive Date: 20110504
  Receipt Date: 20110218
  Transmission Date: 20111010
  Serious: No
  Sender: FDA-Public Use
  Company Number: US-KINGPHARMUSA00001-K201100186

PATIENT
  Age: 45 Year
  Sex: Male

DRUGS (2)
  1. AVINZA [Suspect]
     Dosage: 60 MG, UNK
     Route: 048
  2. AVINZA [Suspect]
     Indication: PAIN
     Dosage: 90 MG, QD
     Route: 048
     Dates: start: 20100101

REACTIONS (1)
  - DRUG DIVERSION [None]
